FAERS Safety Report 7149258-9 (Version None)
Quarter: 2010Q4

REPORT INFORMATION
  Report Type: 
  Country: None (occurrence: None)
  Receive Date: 20101209
  Receipt Date: 20101129
  Transmission Date: 20110411
  Serious: Yes (Hospitalization)
  Sender: FDA-Public Use
  Company Number: GXKR2010US13500

PATIENT
  Age: 15 Year
  Sex: Male

DRUGS (1)
  1. BUPROPION HCL [Suspect]
     Dosage: 130 MG/DAY
     Route: 048

REACTIONS (5)
  - CONFUSIONAL STATE [None]
  - GRAND MAL CONVULSION [None]
  - INCOHERENT [None]
  - RESTLESSNESS [None]
  - SEROTONIN SYNDROME [None]
